FAERS Safety Report 6599325-3 (Version None)
Quarter: 2010Q1

REPORT INFORMATION
  Report Type: 
  Country: None (occurrence: None)
  Receive Date: 20100217
  Receipt Date: 20100127
  Transmission Date: 20100710
  Serious: Yes (Hospitalization)
  Sender: FDA-Public Use
  Company Number: 2009AC000460

PATIENT
  Age: 67 Year
  Sex: Female

DRUGS (20)
  1. DIGOXIN [Suspect]
     Dosage: .25 MG; PO
     Route: 048
     Dates: start: 20040101
  2. DIGOXIN [Suspect]
     Dosage: .25 GM;QD
     Dates: start: 20020201
  3. TORSEMIDE [Concomitant]
  4. AVANDAMET [Concomitant]
  5. ALPRAZOLAM [Concomitant]
  6. DICYCLOMINE [Concomitant]
  7. PANTOPRAZOLE [Concomitant]
  8. DILTIAZEM HCL [Concomitant]
  9. PROPAFENONE HCL [Concomitant]
  10. PREDNISONE [Concomitant]
  11. OXYCODONE HCL [Concomitant]
  12. ATENOLOL [Concomitant]
  13. CIPROFLOXACIN [Concomitant]
  14. CARISOPRODOL [Concomitant]
  15. FLUCONAZOLE [Concomitant]
  16. MEPERIDINE HCL [Concomitant]
  17. METHYLPREDNISOLONE ACETATE [Concomitant]
  18. ERYTHROCIN LACTOBIONATE [Concomitant]
  19. PROMETHAZINE [Concomitant]
  20. RANITIDINE [Concomitant]

REACTIONS (9)
  - ANGINA PECTORIS [None]
  - CHEST PAIN [None]
  - DIARRHOEA [None]
  - DYSPNOEA [None]
  - ECONOMIC PROBLEM [None]
  - HEART RATE IRREGULAR [None]
  - MULTIPLE INJURIES [None]
  - NAUSEA [None]
  - SURGERY [None]
